FAERS Safety Report 20963369 (Version 3)
Quarter: 2023Q1

REPORT INFORMATION
  Report Type: Report from Study
  Country: US (occurrence: US)
  Receive Date: 20220615
  Receipt Date: 20230301
  Transmission Date: 20230417
  Serious: Yes (Hospitalization)
  Sender: FDA-Public Use
  Company Number: US-TAKEDA-2022TUS039949

PATIENT
  Age: 6 Year
  Sex: Female
  Weight: 19 kg

DRUGS (46)
  1. TEDUGLUTIDE [Suspect]
     Active Substance: TEDUGLUTIDE
     Indication: Short-bowel syndrome
     Dosage: UNK
     Route: 042
  2. TEDUGLUTIDE [Suspect]
     Active Substance: TEDUGLUTIDE
     Indication: Short-bowel syndrome
     Dosage: UNK
     Route: 042
  3. TEDUGLUTIDE [Suspect]
     Active Substance: TEDUGLUTIDE
     Indication: Short-bowel syndrome
     Dosage: UNK
     Route: 042
  4. TEDUGLUTIDE [Suspect]
     Active Substance: TEDUGLUTIDE
     Indication: Short-bowel syndrome
     Dosage: UNK
     Route: 042
  5. ONDANSETRON [Concomitant]
     Active Substance: ONDANSETRON
     Indication: Nausea
     Dosage: 3.68 MILLIGRAM
     Route: 048
     Dates: start: 20211216, end: 20211216
  6. ONDANSETRON [Concomitant]
     Active Substance: ONDANSETRON
     Dosage: 3 MILLILITER
     Route: 050
     Dates: start: 20200123, end: 20200222
  7. LOPERAMIDE [Concomitant]
     Active Substance: LOPERAMIDE
     Indication: Diarrhoea
     Dosage: 2 MILLIGRAM, BID
     Route: 050
     Dates: start: 20211216, end: 20211218
  8. LOPERAMIDE [Concomitant]
     Active Substance: LOPERAMIDE
     Dosage: 15 MILLILITER, BID
     Route: 050
     Dates: start: 20211014, end: 20220319
  9. LOPERAMIDE [Concomitant]
     Active Substance: LOPERAMIDE
     Dosage: 2 MILLIGRAM, TID
     Route: 048
     Dates: start: 20220812, end: 20220814
  10. LOPERAMIDE [Concomitant]
     Active Substance: LOPERAMIDE
     Dosage: 2 MILLIGRAM, TID
     Route: 048
     Dates: start: 20221024, end: 20221025
  11. ENOXAPARIN [Concomitant]
     Active Substance: ENOXAPARIN
     Indication: Prophylaxis
     Dosage: 10 MILLIGRAM, Q12H
     Route: 058
     Dates: start: 20211216, end: 20211218
  12. ENOXAPARIN [Concomitant]
     Active Substance: ENOXAPARIN
     Indication: Deep vein thrombosis
     Dosage: 10 MILLIGRAM, BID
     Route: 058
     Dates: start: 20201229, end: 20201229
  13. ENOXAPARIN [Concomitant]
     Active Substance: ENOXAPARIN
     Dosage: 10 MILLIGRAM, BID
     Route: 058
     Dates: start: 20220811, end: 20220811
  14. ENOXAPARIN [Concomitant]
     Active Substance: ENOXAPARIN
     Dosage: 10 MILLIGRAM, TID
     Route: 058
     Dates: start: 20220813, end: 20220814
  15. ENOXAPARIN SODIUM [Concomitant]
     Active Substance: ENOXAPARIN SODIUM
     Indication: Thrombosis
     Dosage: 8 MILLIGRAM, BID
     Route: 058
     Dates: start: 20200106, end: 20200326
  16. ENOXAPARIN SODIUM [Concomitant]
     Active Substance: ENOXAPARIN SODIUM
     Dosage: 8 MILLIGRAM, BID
     Route: 058
     Dates: start: 20201022, end: 20201216
  17. ENOXAPARIN SODIUM [Concomitant]
     Active Substance: ENOXAPARIN SODIUM
     Dosage: 10 MILLIGRAM, BID
     Route: 058
     Dates: start: 20201218
  18. SULFATRIM [Concomitant]
     Active Substance: SULFAMETHOXAZOLE\TRIMETHOPRIM
     Indication: Product used for unknown indication
     Dosage: 5.6 MILLILITER, BID
     Route: 050
     Dates: start: 20200724, end: 20210506
  19. TRIAMCINOLONE ACETONIDE [Concomitant]
     Active Substance: TRIAMCINOLONE ACETONIDE
     Indication: Excessive granulation tissue
     Dosage: UNK UNK, BID
     Route: 061
     Dates: start: 20190822
  20. TRIAMCINOLONE ACETONIDE [Concomitant]
     Active Substance: TRIAMCINOLONE ACETONIDE
     Indication: Excessive granulation tissue
     Dosage: UNK UNK, BID
     Route: 061
     Dates: start: 20220812, end: 20220814
  21. TRIAMCINOLONE ACETONIDE [Concomitant]
     Active Substance: TRIAMCINOLONE ACETONIDE
     Indication: Rash
     Dosage: UNK UNK, BID
     Route: 061
     Dates: start: 20220819
  22. DIAZEPAM [Concomitant]
     Active Substance: DIAZEPAM
     Indication: Seizure
     Dosage: 7.5 MILLIGRAM
     Route: 054
     Dates: start: 20190729
  23. VANCOMYCIN [Concomitant]
     Active Substance: VANCOMYCIN
     Indication: Device related infection
     Dosage: 240 MILLIGRAM, QD
     Route: 042
     Dates: start: 20201229, end: 20201229
  24. VANCOMYCIN [Concomitant]
     Active Substance: VANCOMYCIN
     Indication: Pyrexia
     Dosage: 240 MILLIGRAM, TID
     Route: 042
     Dates: start: 20201230, end: 20201231
  25. VANCOMYCIN [Concomitant]
     Active Substance: VANCOMYCIN
     Dosage: 275 MILLIGRAM, TID
     Route: 042
     Dates: start: 20211216, end: 20211218
  26. VANCOMYCIN [Concomitant]
     Active Substance: VANCOMYCIN
     Dosage: 295 MILLIGRAM
     Route: 042
     Dates: start: 20220818, end: 20220818
  27. VANCOMYCIN [Concomitant]
     Active Substance: VANCOMYCIN
     Dosage: 295 MILLIGRAM, QID
     Route: 042
     Dates: start: 20220818, end: 20220822
  28. PIPERACILLIN SODIUM\TAZOBACTAM SODIUM [Concomitant]
     Active Substance: PIPERACILLIN SODIUM\TAZOBACTAM SODIUM
     Indication: Sepsis
     Dosage: 1620 MILLIGRAM, QID
     Route: 042
     Dates: start: 20201229, end: 20210101
  29. PIPERACILLIN SODIUM\TAZOBACTAM SODIUM [Concomitant]
     Active Substance: PIPERACILLIN SODIUM\TAZOBACTAM SODIUM
     Indication: Vascular device infection
     Dosage: 1860 MILLIGRAM, TID
     Route: 042
     Dates: start: 20211216, end: 20211218
  30. PIPERACILLIN SODIUM\TAZOBACTAM SODIUM [Concomitant]
     Active Substance: PIPERACILLIN SODIUM\TAZOBACTAM SODIUM
     Indication: Pyrexia
     Dosage: 1980 MILLIGRAM
     Route: 042
     Dates: start: 20220818, end: 20220818
  31. PIPERACILLIN SODIUM\TAZOBACTAM SODIUM [Concomitant]
     Active Substance: PIPERACILLIN SODIUM\TAZOBACTAM SODIUM
     Indication: Chills
     Dosage: 1980 MILLIGRAM
     Route: 042
     Dates: start: 20220818, end: 20220820
  32. PIPERACILLIN SODIUM\TAZOBACTAM SODIUM [Concomitant]
     Active Substance: PIPERACILLIN SODIUM\TAZOBACTAM SODIUM
     Indication: Pyrexia
  33. MICAFUNGIN [Concomitant]
     Active Substance: MICAFUNGIN
     Indication: Candida infection
     Dosage: 33 MILLIGRAM, QD
     Route: 042
     Dates: start: 20201231, end: 20210103
  34. FLUCONAZOLE [Concomitant]
     Active Substance: FLUCONAZOLE
     Indication: Antifungal treatment
     Dosage: 196 MILLIGRAM
     Route: 042
     Dates: start: 20201231, end: 20201231
  35. IBUPROFEN [Concomitant]
     Active Substance: IBUPROFEN
     Indication: Pyrexia
     Dosage: 100 MILLIGRAM, QID
     Route: 048
     Dates: start: 20201229, end: 20210105
  36. IBUPROFEN [Concomitant]
     Active Substance: IBUPROFEN
     Indication: Pain
  37. VITAMIN D [Concomitant]
     Active Substance: VITAMIN D NOS
     Dosage: 800 INTERNATIONAL UNIT, QD
     Route: 048
     Dates: start: 2021
  38. VITAMIN B12 [Concomitant]
     Active Substance: CYANOCOBALAMIN
     Dosage: 500 MICROGRAM
     Route: 060
     Dates: start: 20210601
  39. ACETAMINOPHEN [Concomitant]
     Active Substance: ACETAMINOPHEN
     Indication: Pyrexia
     Dosage: 240 MILLIGRAM
     Route: 048
     Dates: start: 20211216, end: 20211218
  40. ACETAMINOPHEN [Concomitant]
     Active Substance: ACETAMINOPHEN
     Indication: Pain
     Dosage: 240 MILLIGRAM
     Route: 048
     Dates: start: 20220813, end: 20220814
  41. ACETAMINOPHEN [Concomitant]
     Active Substance: ACETAMINOPHEN
     Dosage: 294.1 MILLIGRAM
     Route: 048
     Dates: start: 20220817, end: 20220817
  42. HEPARIN [Concomitant]
     Active Substance: HEPARIN SODIUM
     Indication: Flushing
     Dosage: UNK
     Route: 042
     Dates: start: 20220626, end: 20220626
  43. HEPARIN [Concomitant]
     Active Substance: HEPARIN SODIUM
     Indication: Flushing
     Dosage: UNK
     Route: 050
     Dates: start: 20221025, end: 20221025
  44. CEFTRIAXONE [Concomitant]
     Active Substance: CEFTRIAXONE
     Indication: Pyrexia
     Dosage: 1000 MILLIGRAM
     Route: 042
     Dates: start: 20220818, end: 20220818
  45. SILVER NITRATE [Concomitant]
     Active Substance: SILVER NITRATE
     Indication: Excessive granulation tissue
     Dosage: UNK UNK, QD
     Route: 050
     Dates: start: 20220819, end: 20220822
  46. CHOLECALCIFEROL [Concomitant]
     Active Substance: CHOLECALCIFEROL
     Indication: Vitamin D deficiency
     Dosage: 1200 MILLIGRAM, QD
     Route: 048
     Dates: start: 20221025, end: 20221025

REACTIONS (1)
  - COVID-19 [Recovered/Resolved]

NARRATIVE: CASE EVENT DATE: 20211216
